FAERS Safety Report 23799305 (Version 1)
Quarter: 2024Q2

REPORT INFORMATION
  Report Type: Spontaneous
  Country: CN (occurrence: CN)
  Receive Date: 20240430
  Receipt Date: 20240430
  Transmission Date: 20240716
  Serious: Yes (Life-Threatening)
  Sender: FDA-Public Use
  Company Number: CN-BAYER-2024A064456

PATIENT
  Age: 42 Year
  Sex: Female

DRUGS (3)
  1. AVELOX [Suspect]
     Active Substance: MOXIFLOXACIN HYDROCHLORIDE
     Indication: Bronchitis
     Dosage: 1 DF, QD
     Route: 048
     Dates: start: 20240427, end: 20240427
  2. Yan li shuang kou han [Concomitant]
     Indication: Bronchitis
     Dosage: 2 DF, TID
     Route: 048
     Dates: start: 20240427, end: 20240427
  3. FEI LI KE [Concomitant]
     Indication: Bronchitis
     Dosage: 15 ML, TID
     Route: 048
     Dates: start: 20240427, end: 20240427

REACTIONS (6)
  - Dizziness [Recovering/Resolving]
  - Nausea [Recovering/Resolving]
  - Chest discomfort [Recovering/Resolving]
  - Hypoaesthesia [Recovering/Resolving]
  - Muscular weakness [Recovering/Resolving]
  - Musculoskeletal stiffness [Recovering/Resolving]

NARRATIVE: CASE EVENT DATE: 20240427
